FAERS Safety Report 14343047 (Version 1)
Quarter: 2018Q1

REPORT INFORMATION
  Report Type: Spontaneous
  Country: US (occurrence: US)
  Receive Date: 20180102
  Receipt Date: 20180102
  Transmission Date: 20180509
  Serious: Yes (Other)
  Sender: FDA-Public Use
  Company Number: US-BECTON DICKINSON-2017BDN00317

PATIENT
  Age: 29 Year
  Sex: Female

DRUGS (3)
  1. CHLORHEXIDINE [Suspect]
     Active Substance: CHLORHEXIDINE
     Dosage: SAME-DAY PRE-OPERATIVE SKIN PREPARATION
     Route: 061
  2. CHLORHEXIDINE [Suspect]
     Active Substance: CHLORHEXIDINE
     Indication: ANTIBIOTIC PROPHYLAXIS
     Dosage: APPPLIED VIA BATHING
     Route: 061
  3. CHLORHEXIDINE [Suspect]
     Active Substance: CHLORHEXIDINE
     Dosage: 5 MG/ML SKIN PRICK
     Route: 023

REACTIONS (1)
  - Anaphylactic reaction [Recovered/Resolved]
